FAERS Safety Report 8920890 (Version 2)
Quarter: 2013Q1

REPORT INFORMATION
  Report Type: Spontaneous
  Country: US (occurrence: US)
  Receive Date: 20121123
  Receipt Date: 20130130
  Transmission Date: 20140127
  Serious: No
  Sender: FDA-Public Use
  Company Number: US-009507513-1210USA010878

PATIENT
  Age: 22 None
  Sex: Female
  Weight: 52.61 kg

DRUGS (1)
  1. IMPLANON [Suspect]
     Dosage: UNK
     Dates: start: 20090806

REACTIONS (5)
  - Device difficult to use [Unknown]
  - Device difficult to use [Unknown]
  - Incorrect drug administration duration [Unknown]
  - Medical device complication [Unknown]
  - No adverse event [Unknown]
